FAERS Safety Report 20797985 (Version 1)
Quarter: 2022Q2

REPORT INFORMATION
  Report Type: Spontaneous
  Country: US (occurrence: None)
  Receive Date: 20220506
  Receipt Date: 20220506
  Transmission Date: 20220720
  Serious: No
  Sender: FDA-Public Use
  Company Number: None

PATIENT
  Sex: Female

DRUGS (1)
  1. RASUVO [Suspect]
     Active Substance: METHOTREXATE SODIUM
     Indication: Rheumatoid arthritis
     Dosage: OTHER QUANTITY : 15MG/.3ML;?FREQUENCY : WEEKLY;?
     Route: 030
     Dates: start: 20191127

REACTIONS (3)
  - Condition aggravated [None]
  - Pain [None]
  - Drug ineffective [None]
